FAERS Safety Report 5043796-0 (Version None)
Quarter: 2006Q2

REPORT INFORMATION
  Report Type: 
  Country: None (occurrence: None)
  Receive Date: 20060629
  Receipt Date: 20060615
  Transmission Date: 20061013
  Serious: Yes (Death)
  Sender: FDA-Public Use
  Company Number: 2006JP001779

PATIENT
  Age: 55 Year
  Sex: Male

DRUGS (5)
  1. PROGRAF [Suspect]
     Dosage: 0.02 MG/KG, CONTINUOUS, IV DRIP
     Route: 041
  2. PROGRAF [Suspect]
     Dosage: 0.06 MG/KG, UNKNOWN/D, ORAL
     Route: 048
  3. METHOTREXATE [Concomitant]
  4. CICLOSPORIN FORMULATION [Concomitant]
  5. PREDNISOLONE                 (PREDNISOLONE) FORMULATION [Concomitant]

REACTIONS (3)
  - GRAFT VERSUS HOST DISEASE [None]
  - INTERSTITIAL LUNG DISEASE [None]
  - PNEUMOCYSTIS JIROVECI PNEUMONIA [None]
